FAERS Safety Report 20034205 (Version 1)
Quarter: 2021Q4

REPORT INFORMATION
  Report Type: Spontaneous
  Country: FR (occurrence: FR)
  Receive Date: 20211104
  Receipt Date: 20211104
  Transmission Date: 20220304
  Serious: Yes (Life-Threatening)
  Sender: FDA-Public Use
  Company Number: FR-ORGANON-O2111FRA000326

PATIENT
  Age: 72 Year
  Sex: Male

DRUGS (3)
  1. MIRTAZAPINE [Suspect]
     Active Substance: MIRTAZAPINE
     Indication: Suicidal ideation
     Dosage: 15 MILLIGRAM, QD
     Route: 048
     Dates: start: 20210708
  2. TRANXENE [Suspect]
     Active Substance: CLORAZEPATE DIPOTASSIUM
     Indication: Suicidal ideation
     Dosage: 20 MILLIGRAM, QD
     Route: 048
     Dates: start: 20210709, end: 20210710
  3. TRANXENE [Suspect]
     Active Substance: CLORAZEPATE DIPOTASSIUM
     Indication: Suicidal ideation
     Dosage: STRENGTH : 50MG/2.5 ML, LYOPHILISATE AND SOLUTION FOR PARENTERAL USE
     Route: 042
     Dates: start: 20210707, end: 20210708

REACTIONS (1)
  - Coma [Recovered/Resolved]

NARRATIVE: CASE EVENT DATE: 20210710
